FAERS Safety Report 14318061 (Version 3)
Quarter: 2018Q2

REPORT INFORMATION
  Report Type: Spontaneous
  Country: US (occurrence: US)
  Receive Date: 20171222
  Receipt Date: 20180420
  Transmission Date: 20180711
  Serious: Yes (Other)
  Sender: FDA-Public Use
  Company Number: US-009507513-1712USA011475

PATIENT
  Age: 73 Year
  Sex: Male

DRUGS (1)
  1. INTRON A [Suspect]
     Active Substance: INTERFERON ALFA-2B
     Indication: SQUAMOUS CELL CARCINOMA
     Dosage: 1 MILLION UNITS/ML, FOUR TIMES DAILY
     Route: 061

REACTIONS (3)
  - Drug ineffective [Unknown]
  - Squamous cell carcinoma [Unknown]
  - Product use issue [Unknown]
